FAERS Safety Report 7327905-6 (Version None)
Quarter: 2011Q1

REPORT INFORMATION
  Report Type: 
  Country: None (occurrence: None)
  Receive Date: 20110303
  Receipt Date: 20110223
  Transmission Date: 20110831
  Serious: Yes (Hospitalization)
  Sender: FDA-Public Use
  Company Number: US-US-EMD SERONO, INC.-7044304

PATIENT
  Sex: Female
  Weight: 50 kg

DRUGS (6)
  1. LIPITOR [Concomitant]
     Indication: BLOOD CHOLESTEROL INCREASED
  2. VITAMIN E [Concomitant]
     Indication: PROPHYLAXIS
  3. DETROL LA [Concomitant]
  4. FISH OIL [Concomitant]
     Indication: PROPHYLAXIS
  5. REBIF [Suspect]
     Indication: MULTIPLE SCLEROSIS
     Route: 058
     Dates: start: 20100830
  6. TYLENOL PM [Concomitant]
     Indication: PREMEDICATION

REACTIONS (3)
  - INJECTION SITE PAIN [None]
  - INTESTINAL OBSTRUCTION [None]
  - WEIGHT DECREASED [None]
